FAERS Safety Report 4455270-0 (Version None)
Quarter: 2004Q3

REPORT INFORMATION
  Report Type: 
  Country: None (occurrence: None)
  Receive Date: 20040917
  Receipt Date: 20040908
  Transmission Date: 20050211
  Serious: Yes (Death, Other)
  Sender: FDA-Public Use
  Company Number: FR-JNJFOC-20040807710

PATIENT
  Age: 32 Year
  Sex: Male

DRUGS (6)
  1. ACETAMINOPHEN [Suspect]
     Indication: ASTHENIA
     Dosage: SEE IMAGE
  2. ACETAMINOPHEN [Suspect]
     Indication: BACK PAIN
     Dosage: SEE IMAGE
  3. PROPOXYPHENE HCL [Concomitant]
  4. METOCLOPRAMIDE [Concomitant]
  5. IBUPROFEN [Concomitant]
  6. ASPIRIN [Concomitant]

REACTIONS (16)
  - ABDOMINAL RIGIDITY [None]
  - CHOLESTASIS [None]
  - CYTOLYTIC HEPATITIS [None]
  - HEPATIC ENCEPHALOPATHY [None]
  - HEPATIC FAILURE [None]
  - HEPATIC NECROSIS [None]
  - HEPATIC STEATOSIS [None]
  - LUNG CONSOLIDATION [None]
  - LUNG CREPITATION [None]
  - MULTI-ORGAN FAILURE [None]
  - MYALGIA [None]
  - PYREXIA [None]
  - Q FEVER [None]
  - RENAL FAILURE ACUTE [None]
  - RESPIRATORY DISORDER [None]
  - TACHYPNOEA [None]
